FAERS Safety Report 8206999-X (Version None)
Quarter: 2012Q1

REPORT INFORMATION
  Report Type: 
  Country: None (occurrence: None)
  Receive Date: 20120314
  Receipt Date: 20120306
  Transmission Date: 20120608
  Serious: Yes (Death, Life-Threatening)
  Sender: FDA-Public Use
  Company Number: JP-B.I. PHARMACEUTICALS,INC./RIDGEFIELD-2012-EU-01194GD

PATIENT
  Age: 81 Year
  Sex: Female

DRUGS (9)
  1. PRADAXA [Suspect]
     Indication: ATRIAL FIBRILLATION
     Dosage: 220 MG
     Route: 048
     Dates: start: 20110516, end: 20110601
  2. HANP [Concomitant]
     Route: 042
  3. ZOSYN [Suspect]
     Dosage: 9 MG
     Route: 042
     Dates: start: 20110516, end: 20110520
  4. CARVEDILOL [Concomitant]
     Dosage: 2.5 MG
     Route: 048
  5. LASIX [Concomitant]
     Dosage: 20 MG
     Route: 042
     Dates: start: 20110513, end: 20110607
  6. DIGOXIN [Concomitant]
     Dosage: 0.25 MG
     Route: 042
     Dates: start: 20110513, end: 20110515
  7. FLUID REPLACEMENT [Concomitant]
     Dates: start: 20110509
  8. FUROSEMIDE [Concomitant]
     Route: 042
  9. LEVOFLOXACIN [Concomitant]
     Route: 042
     Dates: start: 20110521, end: 20110607

REACTIONS (3)
  - CONDITION AGGRAVATED [None]
  - CARDIAC FAILURE [None]
  - PNEUMONIA [None]
